FAERS Safety Report 4852029-7 (Version None)
Quarter: 2005Q4

REPORT INFORMATION
  Report Type: 
  Country: None (occurrence: None)
  Receive Date: 20051209
  Receipt Date: 20051201
  Transmission Date: 20060501
  Serious: Yes (Other)
  Sender: FDA-Public Use
  Company Number: 2005US-01284

PATIENT

DRUGS (1)
  1. FLUOXETINE [Suspect]
     Dosage: INTRA-UTERINE

REACTIONS (8)
  - ANTIDEPRESSANT DRUG LEVEL INCREASED [None]
  - DRUG EXPOSURE DURING PREGNANCY [None]
  - DRUG WITHDRAWAL SYNDROME NEONATAL [None]
  - NEONATAL DISORDER [None]
  - NEONATAL TACHYCARDIA [None]
  - NEONATAL TACHYPNOEA [None]
  - POOR SUCKING REFLEX [None]
  - TEMPERATURE REGULATION DISORDER [None]
